FAERS Safety Report 15433395 (Version 1)
Quarter: 2018Q3

REPORT INFORMATION
  Report Type: Spontaneous
  Country: IR (occurrence: IR)
  Receive Date: 20180927
  Receipt Date: 20180927
  Transmission Date: 20181010
  Serious: Yes (Other)
  Sender: FDA-Public Use
  Company Number: IR-SUN PHARMACEUTICAL INDUSTRIES LTD-2018RR-185516

PATIENT
  Age: 44 Year
  Sex: Male

DRUGS (7)
  1. FLUVOXAMINE [Suspect]
     Active Substance: FLUVOXAMINE
     Indication: BIPOLAR DISORDER
     Dosage: 100 MG, BID
     Route: 065
  2. TETRABENAZINE. [Suspect]
     Active Substance: TETRABENAZINE
     Indication: BIPOLAR DISORDER
     Dosage: 25 MG, TID
     Route: 065
  3. CLOZAPINE. [Suspect]
     Active Substance: CLOZAPINE
     Indication: BIPOLAR DISORDER
     Dosage: UP TO 150MG
     Route: 065
  4. TRIHEXYPHENIDYL [Suspect]
     Active Substance: TRIHEXYPHENIDYL
     Indication: BIPOLAR DISORDER
     Dosage: 2 MG, TID
     Route: 065
  5. HALOPERIDOL. [Suspect]
     Active Substance: HALOPERIDOL
     Indication: BIPOLAR DISORDER
     Dosage: 50 MG, MONTHLY
     Route: 030
  6. CLONAZEPAM. [Suspect]
     Active Substance: CLONAZEPAM
     Dosage: 2 MG, BID
     Route: 065
  7. CLONAZEPAM. [Suspect]
     Active Substance: CLONAZEPAM
     Indication: BIPOLAR DISORDER
     Dosage: 1 MG, QD
     Route: 065

REACTIONS (4)
  - Tardive dyskinesia [Unknown]
  - Drug effect incomplete [Unknown]
  - Akathisia [Unknown]
  - Parkinsonism [Unknown]
